FAERS Safety Report 4699933-0 (Version None)
Quarter: 2005Q2

REPORT INFORMATION
  Report Type: 
  Country: None (occurrence: None)
  Receive Date: 20050624
  Receipt Date: 20050223
  Transmission Date: 20051028
  Serious: Yes (Hospitalization, Other)
  Sender: FDA-Public Use
  Company Number: US-MERCK-0502USA03233

PATIENT
  Age: 66 Year
  Sex: Female

DRUGS (3)
  1. COSOPT [Suspect]
     Indication: GLAUCOMA
     Route: 047
  2. LOTEMAX [Concomitant]
     Route: 065
  3. LUMIGAN [Concomitant]
     Route: 065

REACTIONS (4)
  - CORNEAL PERFORATION [None]
  - CORNEAL ULCER [None]
  - FOREIGN BODY TRAUMA [None]
  - MEDICAL DEVICE COMPLICATION [None]
